FAERS Safety Report 5468760-9 (Version None)
Quarter: 2007Q3

REPORT INFORMATION
  Report Type: 
  Country: None (occurrence: None)
  Receive Date: 20070926
  Receipt Date: 20070914
  Transmission Date: 20080115
  Serious: Yes (Disabling, Other)
  Sender: FDA-Public Use
  Company Number: CA-PFIZER INC-2007027055

PATIENT
  Sex: Female
  Weight: 85.3 kg

DRUGS (10)
  1. XALATAN [Suspect]
     Indication: GLAUCOMA
     Route: 047
     Dates: start: 20060201, end: 20070321
  2. NAPROSYN [Concomitant]
     Route: 048
     Dates: start: 20061201, end: 20061205
  3. ADVIL LIQUI-GELS [Concomitant]
     Route: 048
  4. ALL OTHER THERAPEUTIC PRODUCTS [Concomitant]
     Indication: EPILEPSY
     Dosage: DAILY DOSE:250MG
     Route: 048
  5. ASCORBIC ACID [Concomitant]
     Dosage: DAILY DOSE:1000CC
     Route: 048
  6. LEVOTHYROXINE SODIUM [Concomitant]
     Indication: THYROID DISORDER
     Dosage: DAILY DOSE:.1MG
     Route: 048
  7. OMEGA [Concomitant]
     Route: 048
  8. VITAMIN CAP [Concomitant]
     Route: 048
  9. THYME [Concomitant]
     Indication: COUGH
     Route: 048
  10. GRAVOL TAB [Concomitant]
     Indication: INSOMNIA
     Dosage: DAILY DOSE:25MG
     Route: 048

REACTIONS (7)
  - ASTHMA [None]
  - COUGH [None]
  - DIAPHRAGMATIC INJURY [None]
  - DYSPNOEA [None]
  - INTRAOCULAR PRESSURE INCREASED [None]
  - LUNG DISORDER [None]
  - VISUAL ACUITY REDUCED [None]
